FAERS Safety Report 19482501 (Version 2)
Quarter: 2021Q3

REPORT INFORMATION
  Report Type: Report from Study
  Country: US (occurrence: US)
  Receive Date: 20210701
  Receipt Date: 20210907
  Transmission Date: 20211014
  Serious: Yes (Hospitalization, Other)
  Sender: FDA-Public Use
  Company Number: US-TAKEDA-2021TUS040714

PATIENT
  Sex: Male

DRUGS (1)
  1. LANADELUMAB [Suspect]
     Active Substance: LANADELUMAB
     Indication: HEREDITARY ANGIOEDEMA
     Dosage: 300 MILLIGRAM, Q2WEEKS
     Route: 058
     Dates: start: 20190910

REACTIONS (2)
  - Cardiac failure congestive [Unknown]
  - Urinary tract infection [Not Recovered/Not Resolved]
